FAERS Safety Report 7775325-2 (Version None)
Quarter: 2011Q3

REPORT INFORMATION
  Report Type: 
  Country: None (occurrence: None)
  Receive Date: 20110921
  Receipt Date: 20110908
  Transmission Date: 20111222
  Serious: Yes (Other)
  Sender: FDA-Public Use
  Company Number: B0748101A

PATIENT
  Sex: Female

DRUGS (4)
  1. QUETIAPINE FUMARATE [Suspect]
  2. LAMOTRIGINE [Suspect]
     Indication: BIPOLAR DISORDER
     Dosage: 200 MG/PER DAY
  3. LITHIUM CARBONATE [Suspect]
  4. CITALOPRAM (FORMULATION UNKNOWN) (CITALOPRAM) [Suspect]

REACTIONS (2)
  - PREMATURE DELIVERY [None]
  - MATERNAL EXPOSURE DURING PREGNANCY [None]
